FAERS Safety Report 4634614-0 (Version None)
Quarter: 2005Q2

REPORT INFORMATION
  Report Type: 
  Country: None (occurrence: None)
  Receive Date: 20050413
  Receipt Date: 20050329
  Transmission Date: 20051028
  Serious: Yes (Hospitalization)
  Sender: FDA-Public Use
  Company Number: S05-FRA-01396-01

PATIENT
  Age: 45 Year
  Sex: Male

DRUGS (6)
  1. CITALOPRAM HYDROBROMIDE [Suspect]
     Indication: DEPRESSION
     Dosage: 20 MG QD PO
     Route: 048
     Dates: start: 20050301
  2. OXAZEPAM [Concomitant]
  3. VITAMIN B1 (VITAMIN B1) [Concomitant]
  4. NICOTINAMIDE [Concomitant]
  5. LORAZEPAM [Concomitant]
  6. XANAX [Concomitant]

REACTIONS (3)
  - MUSCULOSKELETAL STIFFNESS [None]
  - MYOCLONUS [None]
  - TREMOR [None]
